FAERS Safety Report 23093802 (Version 1)
Quarter: 2023Q4

REPORT INFORMATION
  Report Type: Spontaneous
  Country: US (occurrence: US)
  Receive Date: 20231023
  Receipt Date: 20231023
  Transmission Date: 20240109
  Serious: Yes (Hospitalization)
  Sender: FDA-Public Use
  Company Number: US-Hikma Pharmaceuticals-US-H14001-23-02063

PATIENT
  Sex: Male

DRUGS (2)
  1. NALOXONE [Suspect]
     Active Substance: NALOXONE
     Indication: Product used for unknown indication
     Dosage: INITIAL DOSE AND THEN FOLLOW-UP DOSES AS REQUIRED, FOR A TOTAL OF 4 MG
     Route: 065
  2. NALMEFENE [Suspect]
     Active Substance: NALMEFENE
     Indication: Product used for unknown indication
     Dosage: 0.5 MG DOSE FOLLOWED BY A 1 MG DOSE
     Route: 065

REACTIONS (1)
  - Agitation [Unknown]
